FAERS Safety Report 16816886 (Version 1)
Quarter: 2019Q3

REPORT INFORMATION
  Report Type: Spontaneous
  Country: US (occurrence: US)
  Receive Date: 20190726
  Receipt Date: 20190726
  Transmission Date: 20191005
  Serious: No
  Sender: FDA-Public Use
  Company Number: None

PATIENT
  Age: 79 Year
  Sex: Male

DRUGS (4)
  1. SIMVASTATIN. [Concomitant]
     Active Substance: SIMVASTATIN
  2. TAMULOSIN [Concomitant]
     Active Substance: TAMSULOSIN
  3. IMATINIB 400MG TAB (X30) [Suspect]
     Active Substance: IMATINIB
     Dates: start: 20171223
  4. NAMENDA [Concomitant]
     Active Substance: MEMANTINE HYDROCHLORIDE

REACTIONS (1)
  - Dementia [None]

NARRATIVE: CASE EVENT DATE: 20190726
